FAERS Safety Report 19295768 (Version 2)
Quarter: 2021Q2

REPORT INFORMATION
  Report Type: Spontaneous
  Country: GB (occurrence: GB)
  Receive Date: 20210524
  Receipt Date: 20210527
  Transmission Date: 20210717
  Serious: Yes (Death, Hospitalization, Other)
  Sender: FDA-Public Use
  Company Number: GB-PFIZER INC-2021534310

PATIENT
  Age: 5 Year
  Sex: Male

DRUGS (6)
  1. VINCRISTINE SULFATE. [Suspect]
     Active Substance: VINCRISTINE SULFATE
     Indication: BRAIN CANCER METASTATIC
     Dosage: CYCLIC (TWO ROUNDS OF CHEMOTHERAPY)
     Dates: start: 201911, end: 20191216
  2. CISPLATIN. [Suspect]
     Active Substance: CISPLATIN
     Indication: BRAIN CANCER METASTATIC
     Dosage: CYCLIC (TWO ROUNDS OF CHEMOTHERAPY)
     Dates: start: 201911, end: 20191216
  3. ETOPOSIDE. [Suspect]
     Active Substance: ETOPOSIDE
     Indication: NEOPLASM
     Dosage: UNK, CYCLIC (TWO ROUNDS OF CHEMOTHERAPY)
  4. CARBOPLATIN. [Concomitant]
     Active Substance: CARBOPLATIN
  5. THIOTEPA. [Concomitant]
     Active Substance: THIOTEPA
  6. CYCLOPHOSPHAMIDE. [Suspect]
     Active Substance: CYCLOPHOSPHAMIDE
     Indication: NEOPLASM
     Dosage: UNK, CYCLIC (TWO ROUNDS OF CHEMOTHERAPY)

REACTIONS (12)
  - Neutropenic sepsis [Unknown]
  - Diarrhoea [Unknown]
  - Acute kidney injury [Unknown]
  - Intestinal prolapse [Unknown]
  - Feeding disorder [Unknown]
  - Haemorrhage intracranial [Fatal]
  - Mouth ulceration [Unknown]
  - Pain [Unknown]
  - Headache [Unknown]
  - Pancytopenia [Unknown]
  - Seizure [Unknown]
  - Illness [Unknown]

NARRATIVE: CASE EVENT DATE: 2019
